FAERS Safety Report 15848600 (Version 1)
Quarter: 2019Q1

REPORT INFORMATION
  Report Type: Spontaneous
  Country: IT (occurrence: IT)
  Receive Date: 20190121
  Receipt Date: 20190121
  Transmission Date: 20190417
  Serious: Yes (Life-Threatening)
  Sender: FDA-Public Use
  Company Number: IT-ASTRAZENECA-2019SE07920

PATIENT
  Age: 43 Year
  Sex: Female

DRUGS (2)
  1. NEXIUM [Suspect]
     Active Substance: ESOMEPRAZOLE MAGNESIUM
     Indication: GASTRITIS
     Route: 048
     Dates: start: 20051123, end: 20051123
  2. CARDIOASPIRIN [Suspect]
     Active Substance: ASPIRIN
     Indication: HEART DISEASE CONGENITAL
     Dosage: 100.0MG UNKNOWN
     Route: 048
     Dates: start: 20051123, end: 20051123

REACTIONS (4)
  - Choking sensation [Recovering/Resolving]
  - Laryngeal oedema [Recovering/Resolving]
  - Anaphylactic reaction [Recovering/Resolving]
  - Rash pustular [Recovering/Resolving]

NARRATIVE: CASE EVENT DATE: 20051123
